FAERS Safety Report 5525601-9 (Version None)
Quarter: 2007Q4

REPORT INFORMATION
  Report Type: 
  Country: None (occurrence: None)
  Receive Date: 20071120
  Receipt Date: 20071120
  Transmission Date: 20080405
  Serious: Yes (Other)
  Sender: FDA-Public Use
  Company Number: None

PATIENT
  Sex: Female

DRUGS (2)
  1. PEG-INTRON [Suspect]
     Indication: HEPATITIS C
     Dosage: INJECT 0.5ML WEEKLY SQ
     Route: 058
  2. RIBAVIRIN [Suspect]
     Indication: HEPATITIS C
     Dosage: TAKE 400MG-2CAPSULES-TWICE A DAY -AM+PM-PO
     Route: 048

REACTIONS (2)
  - MUSCULAR WEAKNESS [None]
  - RASH [None]
